FAERS Safety Report 5656968-9 (Version None)
Quarter: 2008Q1

REPORT INFORMATION
  Report Type: 
  Country: None (occurrence: None)
  Receive Date: 20080310
  Receipt Date: 20080304
  Transmission Date: 20080703
  Serious: Yes (Other)
  Sender: FDA-Public Use
  Company Number: B0467915A

PATIENT
  Age: 30 Year
  Sex: Female

DRUGS (4)
  1. RETROVIR [Suspect]
     Indication: HIV INFECTION
     Dosage: 600MG PER DAY
     Route: 048
     Dates: start: 20031015
  2. VIDEX [Suspect]
     Indication: HIV INFECTION
     Dosage: 400MG PER DAY
     Route: 048
     Dates: start: 20031015
  3. VIRAMUNE [Suspect]
     Indication: HIV INFECTION
     Route: 048
     Dates: start: 20040827, end: 20041118
  4. SUSTIVA [Suspect]
     Indication: HIV INFECTION
     Dosage: 600MG PER DAY
     Route: 048
     Dates: start: 20031015

REACTIONS (2)
  - ABORTION SPONTANEOUS [None]
  - VAGINAL HAEMORRHAGE [None]
